FAERS Safety Report 15879371 (Version 1)
Quarter: 2019Q1

REPORT INFORMATION
  Report Type: Spontaneous
  Country: US (occurrence: US)
  Receive Date: 20190126
  Receipt Date: 20190126
  Transmission Date: 20190417
  Serious: Yes (Other)
  Sender: FDA-Public Use
  Company Number: None

PATIENT
  Age: 33 Year
  Sex: Female
  Weight: 105.75 kg

DRUGS (8)
  1. PROTONIX [Concomitant]
     Active Substance: PANTOPRAZOLE SODIUM
  2. ZYRTEC [Concomitant]
     Active Substance: CETIRIZINE HYDROCHLORIDE
  3. LEVOFLOXACIN. [Suspect]
     Active Substance: LEVOFLOXACIN
     Indication: PNEUMONIA
     Dosage: ?          QUANTITY:1 TABLET(S);?
     Route: 048
     Dates: start: 20190109, end: 20190122
  4. ROBAXIN 750MG [Concomitant]
  5. FISH OIL 1000 [Concomitant]
  6. PHENTERMINE 30MG [Concomitant]
     Active Substance: PHENTERMINE
  7. RAGLAN 10MG [Concomitant]
  8. ZOLPIDEM [Concomitant]
     Active Substance: ZOLPIDEM\ZOLPIDEM TARTRATE

REACTIONS (5)
  - Arthralgia [None]
  - Joint dislocation [None]
  - Joint swelling [None]
  - Arthropathy [None]
  - Joint instability [None]

NARRATIVE: CASE EVENT DATE: 20190109
